FAERS Safety Report 9844691 (Version 1)
Quarter: 2014Q1

REPORT INFORMATION
  Report Type: Spontaneous
  Country: JP (occurrence: None)
  Receive Date: 20140122
  Receipt Date: 20140122
  Transmission Date: 20141002
  Serious: Yes (Hospitalization)
  Sender: FDA-Public Use
  Company Number: 2013RN000030

PATIENT
  Age: 57 Year
  Sex: 0

DRUGS (10)
  1. ACYCLOVIR [Suspect]
     Indication: INFECTION PROPHYLAXIS
     Route: 048
     Dates: start: 20130104
  2. BENDAMUSTINE (BENDAMUSTINE) (BENDAMUSTINE) [Suspect]
     Indication: NON-HODGKIN^S LYMPHOMA
     Route: 042
     Dates: start: 20120206
  3. LANSOPRAZOLE (LANSOPRAZOLE) [Suspect]
     Indication: GASTRITIS PROPHYLAXIS
     Route: 048
     Dates: start: 20121031, end: 20130808
  4. FLUCONAZOLE (FLUCONAZOLE) [Suspect]
     Indication: INFECTION PROPHYLAXIS
     Route: 048
     Dates: start: 20121031
  5. CO-TRIMOXAZOLE [Suspect]
     Indication: INFECTION PROPHYLAXIS
     Dosage: 1 TAB
     Route: 048
     Dates: start: 20121031, end: 20130808
  6. FEBUXOSTAT [Suspect]
     Indication: HYPERURICAEMIA
     Route: 048
     Dates: start: 20121220
  7. PREGABALIN (PREGABALIN) [Suspect]
     Indication: NEUROPATHY PERIPHERAL
     Route: 048
     Dates: start: 20130325, end: 20130816
  8. MAGNESIUM OXIDE (MAGNESIUM OXIDE) [Suspect]
     Indication: CONSTIPATION
     Route: 048
     Dates: start: 20130208
  9. PARACETAMOL (PARACETAMOL) [Suspect]
     Indication: NEUROPATHY PERIPHERAL
     Route: 048
     Dates: start: 20130717
  10. MECOBALAMIN [Suspect]
     Indication: NEUROPATHY PERIPHERAL
     Route: 048
     Dates: start: 20121115, end: 20130816

REACTIONS (1)
  - Autoimmune haemolytic anaemia [None]
